FAERS Safety Report 8057841-1 (Version None)
Quarter: 2012Q1

REPORT INFORMATION
  Report Type: 
  Country: None (occurrence: None)
  Receive Date: 20120120
  Receipt Date: 20120113
  Transmission Date: 20120608
  Serious: No
  Sender: FDA-Public Use
  Company Number: US-BIOGENIDEC-2012BI001953

PATIENT
  Age: 42 Year
  Sex: Male

DRUGS (2)
  1. TYSABRI [Suspect]
     Indication: MULTIPLE SCLEROSIS
     Route: 042
     Dates: start: 20071011, end: 20080303
  2. TYSABRI [Suspect]
     Route: 042
     Dates: start: 20081208

REACTIONS (5)
  - FATIGUE [None]
  - VERTIGO [None]
  - HEADACHE [None]
  - ARTHRALGIA [None]
  - EXCESSIVE EYE BLINKING [None]
